FAERS Safety Report 7396245-1 (Version None)
Quarter: 2011Q2

REPORT INFORMATION
  Report Type: 
  Country: None (occurrence: None)
  Receive Date: 20110406
  Receipt Date: 20110324
  Transmission Date: 20111010
  Serious: Yes (Life-Threatening)
  Sender: FDA-Public Use
  Company Number: DE-CELGENEUS-062-21880-11033002

PATIENT
  Age: 71 Year
  Sex: Male
  Weight: 71 kg

DRUGS (8)
  1. PANTAZOL [Concomitant]
     Route: 048
  2. ACTOS [Concomitant]
     Dosage: 60 MILLIGRAM
     Route: 048
  3. ARCOXIA [Concomitant]
     Dosage: 60 MILLIGRAM
     Route: 048
  4. CANDESARTAN [Concomitant]
     Route: 048
  5. REVLIMID [Suspect]
     Dosage: 10 MILLIGRAM
     Route: 048
     Dates: start: 20101021, end: 20110211
  6. TREOSULFAN [Suspect]
     Dosage: 250 MILLIGRAM
     Route: 065
     Dates: start: 20101026, end: 20110211
  7. METAMIZOLE [Concomitant]
     Route: 048
  8. FENTANYL [Concomitant]
     Route: 048

REACTIONS (1)
  - PANCYTOPENIA [None]
